FAERS Safety Report 24609372 (Version 2)
Quarter: 2024Q4

REPORT INFORMATION
  Report Type: Spontaneous
  Country: GT (occurrence: GT)
  Receive Date: 20241112
  Receipt Date: 20241125
  Transmission Date: 20250115
  Serious: Yes (Hospitalization)
  Sender: NOVARTIS
  Company Number: CU-002147023-NVSC2024GT217068

PATIENT
  Age: 23 Year
  Sex: Female

DRUGS (1)
  1. CARBAMAZEPINE [Suspect]
     Active Substance: CARBAMAZEPINE
     Indication: Seizure
     Dosage: UNK
     Route: 065

REACTIONS (21)
  - Maternal exposure during pregnancy [Unknown]
  - Abdominal pain [Unknown]
  - Arthralgia [Unknown]
  - Uterine contractions abnormal [Unknown]
  - Bacterial vaginosis [Unknown]
  - Asymptomatic bacteriuria [Unknown]
  - Premature labour [Unknown]
  - Vomiting [Unknown]
  - Headache [Unknown]
  - Communication disorder [Unknown]
  - Lethargy [Unknown]
  - Oxygen saturation decreased [Unknown]
  - Blood pressure increased [Unknown]
  - Haemolysis [Unknown]
  - Hepatic enzyme increased [Unknown]
  - Platelet count decreased [Unknown]
  - Hepatic failure [Unknown]
  - Renal failure [Unknown]
  - Tachycardia [Unknown]
  - Uterine atony [Unknown]
  - Acute fatty liver of pregnancy [Unknown]
